FAERS Safety Report 9303180 (Version 1)
Quarter: 2013Q2

REPORT INFORMATION
  Report Type: Spontaneous
  Country: US (occurrence: US)
  Receive Date: 20130522
  Receipt Date: 20130522
  Transmission Date: 20140414
  Serious: No
  Sender: FDA-Public Use
  Company Number: US-PFIZER INC-2013154493

PATIENT
  Age: 51 Year
  Sex: Female
  Weight: 85.71 kg

DRUGS (5)
  1. CHANTIX [Suspect]
     Indication: SMOKING CESSATION THERAPY
     Dosage: UNK
     Dates: start: 20130514
  2. DIAZEPAM [Concomitant]
     Indication: BACK PAIN
     Dosage: UNK
  3. DIGOXIN [Concomitant]
     Dosage: UNK
  4. NORCO [Concomitant]
     Dosage: UNK
  5. SOMA [Concomitant]
     Dosage: UNK

REACTIONS (3)
  - Abnormal dreams [Unknown]
  - Frustration [Unknown]
  - Abdominal discomfort [Unknown]
